FAERS Safety Report 8803968 (Version 1)
Quarter: 2012Q4

REPORT INFORMATION
  Report Type: 
  Country: DE (occurrence: DE)
  Receive Date: 20120924
  Receipt Date: 20120924
  Transmission Date: 20130627
  Serious: Yes (Hospitalization)
  Sender: FDA-Public Use
  Company Number: PHHY2012DE068384

PATIENT
  Sex: Male
  Weight: 85 kg

DRUGS (4)
  1. GILENYA [Suspect]
     Indication: MULTIPLE SCLEROSIS
     Dosage: 0.5 mg, QD
     Route: 048
     Dates: start: 201107
  2. AMLODIPIN [Concomitant]
     Indication: BLOOD PRESSURE INCREASED
     Dosage: 5 mg, daily
     Route: 048
     Dates: start: 201109
  3. NEBIVOLOL [Concomitant]
     Indication: BLOOD PRESSURE INCREASED
     Dosage: 5 mg, daily
     Route: 048
     Dates: start: 201110
  4. TAMSULOSIN [Concomitant]
     Indication: BLADDER DYSFUNCTION
     Dosage: 0.4 mg, UNK
     Route: 048
     Dates: start: 2010

REACTIONS (1)
  - Visual impairment [Not Recovered/Not Resolved]
